FAERS Safety Report 5716448-9 (Version None)
Quarter: 2008Q2

REPORT INFORMATION
  Report Type: 
  Country: None (occurrence: None)
  Receive Date: 20080424
  Receipt Date: 20080416
  Transmission Date: 20081010
  Serious: Yes (Life-Threatening, Hospitalization, Disabling)
  Sender: FDA-Public Use
  Company Number: JP-AVENTIS-200810878JP

PATIENT
  Age: 76 Year
  Sex: Male
  Weight: 59 kg

DRUGS (5)
  1. TAXOTERE [Suspect]
     Indication: NON-SMALL CELL LUNG CANCER
     Route: 041
     Dates: start: 20080312, end: 20080312
  2. ANCER 20 [Concomitant]
     Route: 058
     Dates: start: 20080208, end: 20080307
  3. NASEA [Concomitant]
     Route: 041
     Dates: start: 20080312, end: 20080312
  4. DECADRON [Concomitant]
     Route: 041
     Dates: start: 20080312, end: 20080312
  5. RADIOTHERAPY [Concomitant]
     Indication: NON-SMALL CELL LUNG CANCER
     Dosage: DOSE: 60 GY/TOTAL
     Dates: start: 20080123, end: 20080307

REACTIONS (3)
  - CYTOMEGALOVIRUS ENTEROCOLITIS [None]
  - ILEUS PARALYTIC [None]
  - RENAL DISORDER [None]
